FAERS Safety Report 17939930 (Version 2)
Quarter: 2022Q1

REPORT INFORMATION
  Report Type: Spontaneous
  Country: US (occurrence: US)
  Receive Date: 20200625
  Receipt Date: 20220317
  Transmission Date: 20220424
  Serious: Yes (Death, Other)
  Sender: FDA-Public Use
  Company Number: US-SAARTEMIS-SAC202006220082

PATIENT
  Age: 79 Year
  Sex: Male

DRUGS (2)
  1. ZANTAC [Suspect]
     Active Substance: RANITIDINE HYDROCHLORIDE
     Indication: Gastric ulcer
     Dosage: 150 MG, QD
     Route: 065
     Dates: start: 199201
  2. ZANTAC [Suspect]
     Active Substance: RANITIDINE HYDROCHLORIDE
     Dosage: 300 MG, QD
     Route: 065
     Dates: end: 201102

REACTIONS (7)
  - Colorectal cancer [Fatal]
  - Oesophageal carcinoma [Fatal]
  - Pancreatic carcinoma [Fatal]
  - Gastric cancer [Fatal]
  - Testis cancer [Fatal]
  - Brain neoplasm malignant [Fatal]
  - Neoplasm malignant [Unknown]

NARRATIVE: CASE EVENT DATE: 20080101
